FAERS Safety Report 25188013 (Version 1)
Quarter: 2025Q2

REPORT INFORMATION
  Report Type: Spontaneous
  Country: US (occurrence: US)
  Receive Date: 20250411
  Receipt Date: 20250411
  Transmission Date: 20250716
  Serious: No
  Sender: KINIKSA PHARMACEUTICALS
  Company Number: US-Kiniksa Pharmaceuticals Ltd.-2025KPU000743

PATIENT
  Sex: Female

DRUGS (1)
  1. ARCALYST [Suspect]
     Active Substance: RILONACEPT
     Indication: Product used for unknown indication
     Dates: start: 20250203

REACTIONS (5)
  - Therapeutic product effect incomplete [Unknown]
  - Rash papular [Unknown]
  - Pleural effusion [Unknown]
  - Viral infection [Unknown]
  - Pericarditis constrictive [Unknown]

NARRATIVE: CASE EVENT DATE: 20250303
